FAERS Safety Report 4404581-3 (Version None)
Quarter: 2004Q3

REPORT INFORMATION
  Report Type: 
  Country: None (occurrence: None)
  Receive Date: 20040720
  Receipt Date: 20040709
  Transmission Date: 20050211
  Serious: No
  Sender: FDA-Public Use
  Company Number: 04P-229-0266502-00

PATIENT
  Sex: Female

DRUGS (6)
  1. HUMIRA [Suspect]
     Indication: RHEUMATOID ARTHRITIS
     Dosage: 40 MG, 1 IN 2 WK, SUBCUTANEOUS
     Route: 058
  2. ALENDRONATE SODIUM [Concomitant]
  3. LEFLUNOMIDE [Concomitant]
  4. PANTOPRAZOLE SODIUM [Concomitant]
  5. DEFLAZACORT [Concomitant]
  6. PARACETAMOL [Concomitant]

REACTIONS (1)
  - RENAL IMPAIRMENT [None]
